FAERS Safety Report 10494139 (Version 2)
Quarter: 2015Q1

REPORT INFORMATION
  Report Type: Spontaneous
  Country: BR (occurrence: BR)
  Receive Date: 20141003
  Receipt Date: 20150121
  Transmission Date: 20150720
  Serious: Yes (Other)
  Sender: FDA-Public Use
  Company Number: BR-ASTRAZENECA-2014SE73363

PATIENT
  Age: 763 Month
  Sex: Female
  Weight: 62 kg

DRUGS (5)
  1. ALENDRONATE [Concomitant]
     Active Substance: ALENDRONATE SODIUM
     Indication: OSTEOPOROSIS
     Route: 048
  2. BETATRINTA INJECTABLE [Concomitant]
     Indication: NEUROPATHY PERIPHERAL
     Dosage: DAILY
     Dates: start: 20140926
  3. OMEPRAZOLE. [Suspect]
     Active Substance: OMEPRAZOLE
     Indication: GASTRITIS
     Route: 048
     Dates: start: 2013
  4. VIMOVO [Suspect]
     Active Substance: ESOMEPRAZOLE MAGNESIUM\NAPROXEN
     Indication: NEUROPATHY PERIPHERAL
     Dosage: 500/20 MG, TWO TIMES A DAY
     Route: 048
     Dates: start: 20140926, end: 20140927
  5. SERTRALINE [Concomitant]
     Active Substance: SERTRALINE HYDROCHLORIDE
     Indication: ANXIETY
     Dosage: EVERY MORNING
     Route: 048

REACTIONS (4)
  - Erythema [Recovered/Resolved]
  - Neuropathy peripheral [Recovered/Resolved]
  - Swelling face [Recovered/Resolved]
  - Product use issue [Recovered/Resolved]

NARRATIVE: CASE EVENT DATE: 201409
